FAERS Safety Report 7686372-3 (Version None)
Quarter: 2011Q3

REPORT INFORMATION
  Report Type: 
  Country: None (occurrence: None)
  Receive Date: 20110816
  Receipt Date: 20110811
  Transmission Date: 20111222
  Serious: Yes (Other)
  Sender: FDA-Public Use
  Company Number: JP-GLAXOSMITHKLINE-B0739495A

PATIENT
  Age: 34 Year
  Sex: Female

DRUGS (4)
  1. LEXOTAN [Concomitant]
     Route: 048
  2. MUCODYNE [Concomitant]
     Route: 048
  3. THEO-DUR [Concomitant]
     Route: 048
  4. PAXIL [Suspect]
     Indication: DEPRESSION
     Dosage: 40MG PER DAY
     Route: 048
     Dates: start: 20080101

REACTIONS (1)
  - VISUAL ACUITY REDUCED [None]
